FAERS Safety Report 22056905 (Version 1)
Quarter: 2023Q1

REPORT INFORMATION
  Report Type: Other
  Country: CN (occurrence: None)
  Receive Date: 20230303
  Receipt Date: 20230303
  Transmission Date: 20230418
  Serious: Yes (Other)
  Sender: FDA-Public Use
  Company Number: CN-ROCHE-3292253

PATIENT
  Age: 45 Year
  Sex: Male

DRUGS (17)
  1. TRASTUZUMAB [Suspect]
     Active Substance: TRASTUZUMAB
     Indication: Epstein-Barr virus associated lymphoma
     Dosage: SIX CYCLES
     Route: 065
     Dates: start: 20160907, end: 20161207
  2. TRASTUZUMAB [Suspect]
     Active Substance: TRASTUZUMAB
     Indication: Gastric cancer
     Route: 065
     Dates: end: 20170908
  3. TRASTUZUMAB [Suspect]
     Active Substance: TRASTUZUMAB
     Dosage: 21-DAY CYCLE
     Route: 065
     Dates: start: 20171011, end: 20171106
  4. DOCETAXEL [Suspect]
     Active Substance: DOCETAXEL
     Indication: Epstein-Barr virus associated lymphoma
     Dosage: SIX CYCLES
     Route: 065
     Dates: start: 20160907, end: 20161207
  5. DOCETAXEL [Suspect]
     Active Substance: DOCETAXEL
     Indication: Gastric cancer
  6. CISPLATIN [Suspect]
     Active Substance: CISPLATIN
     Indication: Epstein-Barr virus associated lymphoma
     Dosage: SIX CYCLES
     Route: 065
     Dates: start: 20160907, end: 20161207
  7. CISPLATIN [Suspect]
     Active Substance: CISPLATIN
     Indication: Gastric cancer
  8. TS-1 [Suspect]
     Active Substance: GIMERACIL\OTERACIL\TEGAFUR
     Indication: Epstein-Barr virus associated lymphoma
     Dosage: SIX CYCLES
     Route: 065
     Dates: start: 20160907, end: 20161207
  9. TS-1 [Suspect]
     Active Substance: GIMERACIL\OTERACIL\TEGAFUR
     Indication: Gastric cancer
  10. LEUCOVORIN [Suspect]
     Active Substance: LEUCOVORIN
     Indication: Epstein-Barr virus associated lymphoma
     Dosage: 28 DAYS CYCLE
     Route: 065
     Dates: end: 20170908
  11. LEUCOVORIN [Suspect]
     Active Substance: LEUCOVORIN
     Indication: Gastric cancer
  12. FLUOROURACIL [Suspect]
     Active Substance: FLUOROURACIL
     Indication: Epstein-Barr virus associated lymphoma
     Dosage: 28 DAYS CYCLE
     Route: 065
     Dates: end: 20170908
  13. FLUOROURACIL [Suspect]
     Active Substance: FLUOROURACIL
     Indication: Gastric cancer
  14. IRINOTECAN [Suspect]
     Active Substance: IRINOTECAN
     Indication: Epstein-Barr virus associated lymphoma
     Dosage: 28 DAYS CYCLE
     Route: 065
     Dates: end: 20170908
  15. IRINOTECAN [Suspect]
     Active Substance: IRINOTECAN
     Indication: Gastric cancer
  16. GEMCITABINE [Suspect]
     Active Substance: GEMCITABINE
     Indication: Epstein-Barr virus associated lymphoma
     Dosage: 21-DAY CYCLE
     Route: 065
     Dates: start: 20171011, end: 20171106
  17. GEMCITABINE [Suspect]
     Active Substance: GEMCITABINE
     Indication: Gastric cancer

REACTIONS (4)
  - Myelosuppression [Unknown]
  - Disease progression [Unknown]
  - Metastases to liver [Unknown]
  - Drug ineffective [Unknown]

NARRATIVE: CASE EVENT DATE: 20170101
